FAERS Safety Report 23633375 (Version 1)
Quarter: 2024Q1

REPORT INFORMATION
  Report Type: Spontaneous
  Country: HU (occurrence: HU)
  Receive Date: 20240314
  Receipt Date: 20240314
  Transmission Date: 20240410
  Serious: Yes (Hospitalization, Other)
  Sender: FDA-Public Use
  Company Number: HU-002147023-NVSC2024HU051240

PATIENT

DRUGS (6)
  1. RUXOLITINIB [Suspect]
     Active Substance: RUXOLITINIB
     Indication: Myeloproliferative neoplasm
     Dosage: 20 MG, BID
     Route: 065
     Dates: start: 201910, end: 202001
  2. RUXOLITINIB [Suspect]
     Active Substance: RUXOLITINIB
     Indication: Polycythaemia vera
     Dosage: 10 MG, BID
     Route: 065
     Dates: end: 202003
  3. RUXOLITINIB [Suspect]
     Active Substance: RUXOLITINIB
     Dosage: UNK
     Route: 065
     Dates: end: 202005
  4. RUXOLITINIB [Suspect]
     Active Substance: RUXOLITINIB
     Dosage: 20 MG, BID
     Route: 065
     Dates: start: 202106, end: 202203
  5. RUXOLITINIB [Suspect]
     Active Substance: RUXOLITINIB
     Dosage: 15 MG, BID
     Route: 065
     Dates: start: 202203
  6. ASPIRIN [Concomitant]
     Active Substance: ASPIRIN
     Indication: Myeloproliferative neoplasm
     Dosage: 100 MG, QD
     Route: 065
     Dates: start: 201401

REACTIONS (7)
  - Abdominal discomfort [Recovered/Resolved]
  - Asthenia [Recovered/Resolved]
  - Epistaxis [Recovered/Resolved]
  - Splenomegaly [Recovering/Resolving]
  - Abdominal distension [Recovered/Resolved]
  - Thrombocytosis [Recovering/Resolving]
  - Cytopenia [Recovering/Resolving]

NARRATIVE: CASE EVENT DATE: 20200101
